FAERS Safety Report 18064680 (Version 1)
Quarter: 2020Q3

REPORT INFORMATION
  Report Type: Spontaneous
  Country: US (occurrence: US)
  Receive Date: 20200724
  Receipt Date: 20200724
  Transmission Date: 20201103
  Serious: No
  Sender: FDA-Public Use
  Company Number: US-TEVA-2020-US-1804389

PATIENT
  Sex: Male

DRUGS (1)
  1. ESCITALOPRAM OXALATE TEVA [Suspect]
     Active Substance: ESCITALOPRAM OXALATE
     Route: 065

REACTIONS (3)
  - Insomnia [Unknown]
  - Malaise [Unknown]
  - Diarrhoea [Unknown]
